FAERS Safety Report 9995787 (Version 1)
Quarter: 2014Q1

REPORT INFORMATION
  Report Type: Spontaneous
  Country: US (occurrence: None)
  Receive Date: 20140225
  Receipt Date: 20140225
  Transmission Date: 20141002
  Serious: Yes (Hospitalization)
  Sender: FDA-Public Use
  Company Number: 2013-US-000070

PATIENT
  Age: 52 Year
  Sex: Female

DRUGS (4)
  1. PRIALT [Suspect]
     Indication: PAIN
     Route: 037
     Dates: end: 20130826
  2. PRIALT [Suspect]
     Indication: POST LAMINECTOMY SYNDROME
     Route: 037
     Dates: end: 20130826
  3. HYDROMORPHONE HCL [Suspect]
     Indication: PAIN
     Route: 037
     Dates: end: 20130826
  4. HYDROMORPHONE HCL [Suspect]
     Indication: POST LAMINECTOMY SYNDROME
     Route: 037
     Dates: end: 20130826

REACTIONS (2)
  - Drug withdrawal syndrome [None]
  - Device issue [None]
